FAERS Safety Report 4507451-5 (Version None)
Quarter: 2004Q4

REPORT INFORMATION
  Report Type: 
  Country: None (occurrence: None)
  Receive Date: 20041118
  Receipt Date: 20010802
  Transmission Date: 20050328
  Serious: Yes (Death, Life-Threatening, Hospitalization, Disabling)
  Sender: FDA-Public Use
  Company Number: EM2001-0993

PATIENT
  Age: 68 Year
  Sex: Male

DRUGS (19)
  1. PROLEUKIN [Suspect]
     Indication: RENAL CELL CARCINOMA STAGE UNSPECIFIED
     Dosage: 60000IU/KG, Q8H, DAYS 15 9, IV
     Route: 042
     Dates: start: 20010516, end: 20010520
  2. PROLEUKIN [Suspect]
     Indication: RENAL CELL CARCINOMA STAGE UNSPECIFIED
     Dosage: 60000IU/KG, Q8H, DAYS 15 9, IV
     Route: 042
     Dates: start: 20010530, end: 20010603
  3. MICRONASE [Concomitant]
  4. FOLIC ACID [Concomitant]
  5. LIPITOR [Concomitant]
  6. TIMOPTIC [Concomitant]
  7. SULFACETAMIDE (SULFACETAMIDE) EYE DROPS [Concomitant]
  8. CAPTOPRIL [Concomitant]
  9. ASPIRIN [Concomitant]
  10. ZANTAC [Concomitant]
  11. LOPRESSOR [Concomitant]
  12. ZESTRIL [Concomitant]
  13. INSULIN [Concomitant]
  14. LOMOTIL [Concomitant]
  15. METFORMIN HCL [Concomitant]
  16. TYLENOL [Concomitant]
  17. TRAZODONE HCL [Concomitant]
  18. AMBIEN [Concomitant]
  19. MULTIVITAMINS (ERGOCALCIFEROL, ASCORBIC ACID, FOLIC ACID, RETINOL, THI [Concomitant]

REACTIONS (36)
  - ANTICONVULSANT DRUG LEVEL DECREASED [None]
  - BACK PAIN [None]
  - BLOOD CREATININE INCREASED [None]
  - BRAIN OEDEMA [None]
  - CEREBRAL HAEMORRHAGE [None]
  - CHILLS [None]
  - CIRCADIAN RHYTHM SLEEP DISORDER [None]
  - COMA [None]
  - CONSTIPATION [None]
  - CONVULSION [None]
  - DISEASE PROGRESSION [None]
  - GAZE PALSY [None]
  - HAEMATOCRIT DECREASED [None]
  - HAEMODILUTION [None]
  - HAEMOPTYSIS [None]
  - HEMIPARESIS [None]
  - HYPOTENSION [None]
  - LETHARGY [None]
  - MALIGNANT NEOPLASM PROGRESSION [None]
  - METASTASES TO CENTRAL NERVOUS SYSTEM [None]
  - METASTASES TO LUNG [None]
  - METASTATIC RENAL CELL CARCINOMA [None]
  - NAUSEA [None]
  - OEDEMA [None]
  - OEDEMA PERIPHERAL [None]
  - OLIGURIA [None]
  - PARALYSIS FLACCID [None]
  - PRURITUS GENERALISED [None]
  - PULMONARY EMBOLISM [None]
  - PULSE ABSENT [None]
  - THROMBOSIS [None]
  - URINARY INCONTINENCE [None]
  - VISUAL DISTURBANCE [None]
  - VITREOUS DETACHMENT [None]
  - VOMITING [None]
  - WEIGHT INCREASED [None]
